FAERS Safety Report 9456505 (Version 1)
Quarter: 2013Q3

REPORT INFORMATION
  Report Type: Spontaneous
  Country: PT (occurrence: PT)
  Receive Date: 20130813
  Receipt Date: 20130813
  Transmission Date: 20140515
  Serious: Yes (Hospitalization)
  Sender: FDA-Public Use
  Company Number: PT-ABBOTT-13X-130-1129241-00

PATIENT
  Age: 57 Year
  Sex: Male

DRUGS (7)
  1. VALPROIC ACID [Suspect]
     Indication: EPILEPSY
  2. VALPROIC ACID [Suspect]
  3. ASPIRIN [Suspect]
     Indication: TRANSIENT ISCHAEMIC ATTACK
  4. SIMVASTATIN [Concomitant]
     Indication: PRODUCT USED FOR UNKNOWN INDICATION
  5. AMOXICILLIN/CLAVULANIC ACID [Concomitant]
     Indication: PRODUCT USED FOR UNKNOWN INDICATION
  6. CAPTOPRIL [Concomitant]
     Indication: PRODUCT USED FOR UNKNOWN INDICATION
  7. METFORMIN [Concomitant]
     Indication: PRODUCT USED FOR UNKNOWN INDICATION

REACTIONS (10)
  - Postictal paralysis [Unknown]
  - Hyperammonaemic encephalopathy [Recovered/Resolved]
  - Myoclonus [Unknown]
  - Confusional state [Unknown]
  - Muscle twitching [Unknown]
  - Stupor [Unknown]
  - Hyperammonaemia [Recovered/Resolved]
  - Confusional state [Unknown]
  - Coma hepatic [Recovered/Resolved]
  - Coma scale [Unknown]
